FAERS Safety Report 20670408 (Version 1)
Quarter: 2022Q2

REPORT INFORMATION
  Report Type: Spontaneous
  Country: US (occurrence: US)
  Receive Date: 20220404
  Receipt Date: 20220404
  Transmission Date: 20220720
  Serious: No
  Sender: FDA-Public Use
  Company Number: US-BRISTOL-MYERS SQUIBB COMPANY-2022-011291

PATIENT
  Age: 82 Year
  Sex: Female
  Weight: 55.34 kg

DRUGS (1)
  1. THALOMID [Suspect]
     Active Substance: THALIDOMIDE
     Indication: Myelofibrosis
     Dosage: DAILY
     Route: 048
     Dates: start: 20211201, end: 20220321

REACTIONS (4)
  - Abdominal discomfort [Unknown]
  - Dehydration [Unknown]
  - Intentional product use issue [Unknown]
  - Adverse event [Unknown]
